FAERS Safety Report 8803644 (Version 1)
Quarter: 2012Q4

REPORT INFORMATION
  Report Type: 
  Country: GB (occurrence: GB)
  Receive Date: 20120924
  Receipt Date: 20120924
  Transmission Date: 20130627
  Serious: Yes (Hospitalization)
  Sender: FDA-Public Use
  Company Number: GB-ASTELLAS-2012EU006950

PATIENT
  Age: 55 Year
  Sex: Female

DRUGS (2)
  1. TACROLIMUS SYSTEMIC [Suspect]
     Indication: LIVER TRANSPLANT
     Dosage: 5 mg, bid
     Route: 065
  2. PREDNISOLON                        /00016201/ [Concomitant]
     Indication: LIVER TRANSPLANT
     Dosage: 15 mg, UID/QD
     Route: 065

REACTIONS (1)
  - Coronary artery dissection [Recovered/Resolved]
